FAERS Safety Report 4767064-7 (Version None)
Quarter: 2005Q3

REPORT INFORMATION
  Report Type: 
  Country: None (occurrence: None)
  Receive Date: 20050908
  Receipt Date: 20050908
  Transmission Date: 20060218
  Serious: Yes (Hospitalization)
  Sender: FDA-Public Use
  Company Number: None

PATIENT
  Age: 90 Year
  Sex: Female
  Weight: 72.6 kg

DRUGS (7)
  1. LASIX [Suspect]
     Indication: HYPERTENSION
     Dosage: 40 MG PO DAILY [CHRONIC]
     Route: 048
  2. LISINOPRIL [Suspect]
     Indication: HYPERTENSION
     Dosage: 10 MG PO DAILY [CHRONIC]
     Route: 048
  3. IRON [Concomitant]
  4. LEXAPRO [Concomitant]
  5. RISPERDAL [Concomitant]
  6. HYDRALAZINE [Concomitant]
  7. GABAPENTIN [Concomitant]

REACTIONS (5)
  - DYSPHAGIA [None]
  - HYPERNATRAEMIA [None]
  - MENTAL STATUS CHANGES [None]
  - ORAL INTAKE REDUCED [None]
  - RENAL FAILURE ACUTE [None]
